FAERS Safety Report 6863895-8 (Version None)
Quarter: 2010Q3

REPORT INFORMATION
  Report Type: 
  Country: None (occurrence: None)
  Receive Date: 20100721
  Receipt Date: 20080313
  Transmission Date: 20110219
  Serious: No
  Sender: FDA-Public Use
  Company Number: US-PFIZER INC-2008024251

PATIENT
  Sex: Female
  Weight: 77.3 kg

DRUGS (3)
  1. CHANTIX [Suspect]
     Indication: SMOKING CESSATION THERAPY
     Dates: start: 20080220
  2. FOSAMAX [Suspect]
     Indication: OSTEOPOROSIS
     Dates: start: 20070101, end: 20080201
  3. LOVASTATIN [Concomitant]
     Indication: BLOOD CHOLESTEROL ABNORMAL
     Dates: start: 20080301

REACTIONS (5)
  - DECREASED ACTIVITY [None]
  - DIZZINESS [None]
  - GASTRIC DISORDER [None]
  - NAUSEA [None]
  - VOMITING [None]
